FAERS Safety Report 15951173 (Version 2)
Quarter: 2019Q1

REPORT INFORMATION
  Report Type: Other
  Country: HU (occurrence: HU)
  Receive Date: 20190212
  Receipt Date: 20190306
  Transmission Date: 20190417
  Serious: Yes (Other)
  Sender: FDA-Public Use
  Company Number: HU-RARE DISEASE THERAPEUTICS, INC.-2062535

PATIENT
  Sex: Male

DRUGS (2)
  1. AZATHIOPRINE. [Suspect]
     Active Substance: AZATHIOPRINE
     Route: 065
  2. PURIXAN [Suspect]
     Active Substance: MERCAPTOPURINE
     Indication: CROHN^S DISEASE
     Route: 065

REACTIONS (6)
  - Myalgia [Unknown]
  - Pyrexia [Unknown]
  - Arthralgia [Unknown]
  - Influenza like illness [Unknown]
  - Off label use [None]
  - Fatigue [Unknown]
